FAERS Safety Report 7199084-X (Version None)
Quarter: 2010Q4

REPORT INFORMATION
  Report Type: 
  Country: None (occurrence: None)
  Receive Date: 20101228
  Receipt Date: 20101221
  Transmission Date: 20110411
  Serious: Yes (Other)
  Sender: FDA-Public Use
  Company Number: MA-ROCHE-723820

PATIENT
  Age: 38 Year
  Sex: Female
  Weight: 56 kg

DRUGS (3)
  1. TOCILIZUMAB [Suspect]
     Indication: RHEUMATOID ARTHRITIS
     Dosage: DATE OF LAST DOSE PRIOR TO SAE: 13 JULY 2010.
     Route: 042
     Dates: start: 20100615, end: 20100615
  2. TOCILIZUMAB [Suspect]
     Route: 042
     Dates: start: 20100713, end: 20100713
  3. TOCILIZUMAB [Suspect]
     Dosage: DOSE DISCONTINUED.
     Route: 042
     Dates: start: 20100810, end: 20100810

REACTIONS (1)
  - CYTOLYTIC HEPATITIS [None]
